FAERS Safety Report 5610016-5 (Version None)
Quarter: 2008Q1

REPORT INFORMATION
  Report Type: 
  Country: None (occurrence: None)
  Receive Date: 20080129
  Receipt Date: 20080115
  Transmission Date: 20080703
  Serious: Yes (Death)
  Sender: FDA-Public Use
  Company Number: 1-15708217/MED-08020

PATIENT

DRUGS (3)
  1. METOPROLOL TARTRATE [Suspect]
     Indication: CARDIAC FAILURE
     Dosage: 32.8 TO 42.5 MG, DAILY, ORAL
     Route: 048
  2. DIGOXIN [Concomitant]
  3. ISOSORBIDE DINITRATE [Concomitant]

REACTIONS (4)
  - CARDIAC FAILURE [None]
  - CARDIOGENIC SHOCK [None]
  - CENTRAL LINE INFECTION [None]
  - EOSINOPHILIA [None]
